FAERS Safety Report 21990862 (Version 2)
Quarter: 2023Q1

REPORT INFORMATION
  Report Type: Report from Study
  Country: US (occurrence: US)
  Receive Date: 20230214
  Receipt Date: 20230222
  Transmission Date: 20230418
  Serious: Yes (Hospitalization)
  Sender: FDA-Public Use
  Company Number: US-002147023-NVSC2023US030326

PATIENT
  Sex: Male

DRUGS (1)
  1. ENTRESTO [Suspect]
     Active Substance: SACUBITRIL\VALSARTAN
     Indication: Product used for unknown indication
     Dosage: 1 DOSAGE FORM, BID
     Route: 048
     Dates: start: 202211, end: 202302

REACTIONS (7)
  - Weight increased [Unknown]
  - Swelling [Unknown]
  - Fluid retention [Unknown]
  - Urinary retention [Unknown]
  - Pollakiuria [Unknown]
  - Platelet count decreased [Unknown]
  - Hypotension [Unknown]
